FAERS Safety Report 4430806-4 (Version None)
Quarter: 2004Q3

REPORT INFORMATION
  Report Type: 
  Country: None (occurrence: None)
  Receive Date: 20040823
  Receipt Date: 20040730
  Transmission Date: 20050211
  Serious: Yes (Other)
  Sender: FDA-Public Use
  Company Number: 200417608GDDC

PATIENT
  Age: 60 Year
  Sex: Male

DRUGS (3)
  1. LANTUS [Suspect]
     Dosage: DOSE UNIT: UNITS
     Route: 058
     Dates: start: 20030702
  2. GLUCOPHAGE [Concomitant]
     Route: 048
     Dates: start: 19990601
  3. ACTOS [Concomitant]
     Route: 048
     Dates: start: 20040601

REACTIONS (3)
  - DECREASED INSULIN REQUIREMENT [None]
  - HYPOGLYCAEMIA UNAWARENESS [None]
  - MEDICATION ERROR [None]
